FAERS Safety Report 7762605-X (Version None)
Quarter: 2011Q3

REPORT INFORMATION
  Report Type: 
  Country: None (occurrence: None)
  Receive Date: 20110920
  Receipt Date: 20110916
  Transmission Date: 20111222
  Serious: Yes (Death)
  Sender: FDA-Public Use
  Company Number: US-GLAXOSMITHKLINE-A0943598A

PATIENT
  Age: 79 Year
  Sex: Male

DRUGS (1)
  1. PROMACTA [Suspect]
     Indication: MYELODYSPLASTIC SYNDROME

REACTIONS (1)
  - DEATH [None]
